FAERS Safety Report 5610767-2 (Version None)
Quarter: 2008Q1

REPORT INFORMATION
  Report Type: 
  Country: None (occurrence: None)
  Receive Date: 20080201
  Receipt Date: 20080128
  Transmission Date: 20080703
  Serious: Yes (Death, Life-Threatening, Hospitalization, Disabling)
  Sender: FDA-Public Use
  Company Number: PHFR2008GB00708

PATIENT
  Age: 72 Year
  Sex: Male
  Weight: 60 kg

DRUGS (5)
  1. GLEEVEC [Suspect]
     Dosage: 400 MG, QD
     Route: 048
     Dates: start: 20001101, end: 20040218
  2. BUSULPHAN [Concomitant]
     Dosage: 2 MG, QD
     Route: 048
     Dates: start: 20070315, end: 20070522
  3. HYDROXYCARBAMIDE [Concomitant]
     Dosage: 500 MG, QD
     Route: 048
     Dates: start: 20070215, end: 20070801
  4. DASATINIB [Suspect]
     Dosage: 140 MG, QD
     Route: 048
     Dates: start: 20050406, end: 20060523
  5. NILOTINIB [Suspect]
     Dosage: 600 MG, QD
     Route: 048
     Dates: start: 20060705, end: 20070221

REACTIONS (1)
  - NON-SMALL CELL LUNG CANCER [None]
